FAERS Safety Report 10177828 (Version 1)
Quarter: 2014Q2

REPORT INFORMATION
  Report Type: Spontaneous
  Country: US (occurrence: US)
  Receive Date: 20140516
  Receipt Date: 20140516
  Transmission Date: 20141212
  Serious: No
  Sender: FDA-Public Use
  Company Number: US-SA-2013SA119687

PATIENT
  Age: 27 Year
  Sex: Female

DRUGS (2)
  1. APIDRA [Suspect]
     Indication: TYPE 1 DIABETES MELLITUS
     Dosage: DOSE-1UNIT/9G OF CARBS, FREQUENCY-.95UNITS/HR BASAL, TAKEN FROM- YEARS
     Route: 058
  2. LANTUS [Concomitant]
     Dosage: DOSE:22 UNIT(S)
     Route: 065

REACTIONS (7)
  - Nasopharyngitis [Unknown]
  - Drug resistance [Unknown]
  - Malaise [Unknown]
  - Nausea [Unknown]
  - Blood glucose increased [Unknown]
  - Drug ineffective [Unknown]
  - Hyperglycaemia [Unknown]
